FAERS Safety Report 11991067 (Version 1)
Quarter: 2016Q1

REPORT INFORMATION
  Report Type: Spontaneous
  Country: US (occurrence: None)
  Receive Date: 20160201
  Receipt Date: 20160201
  Transmission Date: 20160526
  Serious: Yes (Hospitalization)
  Sender: FDA-Public Use
  Company Number: C-00KRTWC

PATIENT
  Age: 19 Year
  Sex: Female

DRUGS (2)
  1. CLEARPROOF OIL-FREE MOISTURIZER MARY KAY INC. [Suspect]
     Active Substance: COSMETICS
     Indication: DRY SKIN PROPHYLAXIS
     Dosage: SMALL PORTION OF CREAM ONE TIME TOPICAL
     Route: 061
     Dates: start: 20151204
  2. CLEAR PROOF CLARIFYING CLEANSING GEL ACNE MEDICATION [Suspect]
     Active Substance: SALICYLIC ACID
     Indication: ACNE
     Dosage: SMALL PORTION OF GEL ONE TIME TOPICAL
     Route: 061
     Dates: start: 20151204

REACTIONS (6)
  - Application site pruritus [None]
  - Eye swelling [None]
  - Erythema [None]
  - Dyspnoea [None]
  - Application site pain [None]
  - Wheezing [None]

NARRATIVE: CASE EVENT DATE: 20151204
